FAERS Safety Report 5199753-7 (Version None)
Quarter: 2007Q1

REPORT INFORMATION
  Report Type: 
  Country: None (occurrence: None)
  Receive Date: 20070105
  Receipt Date: 20060217
  Transmission Date: 20070707
  Serious: No
  Sender: FDA-Public Use
  Company Number: US-GLAXOSMITHKLINE-A0593921A

PATIENT
  Age: 73 Year
  Sex: Female

DRUGS (2)
  1. TAGAMET HB 200 [Suspect]
  2. ROLAIDS [Concomitant]

REACTIONS (3)
  - DRUG INEFFECTIVE [None]
  - ERUCTATION [None]
  - THROAT IRRITATION [None]
